FAERS Safety Report 9735262 (Version 1)
Quarter: 2013Q4

REPORT INFORMATION
  Report Type: Spontaneous
  Country: FR (occurrence: None)
  Receive Date: 20131204
  Receipt Date: 20131204
  Transmission Date: 20140711
  Serious: Yes (Hospitalization)
  Sender: FDA-Public Use
  Company Number: AUR-APL-2013-10063

PATIENT
  Age: 68 Year
  Sex: Male

DRUGS (8)
  1. PERINDOPRIL (PERINDOPRIL) [Suspect]
     Indication: ISCHAEMIC STROKE
     Route: 048
     Dates: start: 20131015, end: 20131021
  2. TAHOR (ATORVASTATIN CALCIUM) [Suspect]
     Indication: ISCHAEMIC STROKE
     Route: 048
     Dates: start: 20131014
  3. LYRICA (PREGABALIN) [Suspect]
     Indication: NEUROPATHY PERIPHERAL
     Dosage: 2 DOSAGE  (1 DOSAGE FORMS, 2 IN 1 D)
     Dates: start: 20131014
  4. BACTRIM (BACTRIM) (SULFAMETHOXAZOLE, TRIMETHOPRIM) [Suspect]
     Indication: BACTERIAL PYELONEPHRITIS
     Dosage: 4 DOSAGE FORMS (2 DOSAGE FORMS, 2 IN 1 D)
     Route: 042
     Dates: start: 20131011, end: 20131024
  5. LOVENOX (ENOXAPARIN SODIUM) [Suspect]
     Indication: THROMBOSIS PROPHYLAXIS
     Route: 058
     Dates: start: 20131003
  6. KARDEGIC (ACETYLSALICYLATE LYSINE) [Suspect]
     Indication: ISCHAEMIC STROKE
     Route: 048
     Dates: start: 20131004
  7. PERFALGAN [Suspect]
     Indication: PRODUCT USED FOR UNKNOWN INDICATION
     Dosage: 400 ML (100 ML, 4 IN 1 D)
     Route: 042
     Dates: start: 20131009
  8. TOBREX [Suspect]
     Indication: PRODUCT USED FOR UNKNOWN INDICATION
     Dosage: 3 DOSAGE FORMS (1 DOSAGE FORMS, 3 IN 1 D)
     Route: 047
     Dates: start: 20131017

REACTIONS (2)
  - Drug reaction with eosinophilia and systemic symptoms [None]
  - Hepatocellular injury [None]
